FAERS Safety Report 20461719 (Version 1)
Quarter: 2022Q1

REPORT INFORMATION
  Report Type: Spontaneous
  Country: US (occurrence: None)
  Receive Date: 20220211
  Receipt Date: 20220211
  Transmission Date: 20220423
  Serious: Yes (Death)
  Sender: FDA-Public Use
  Company Number: None

PATIENT
  Sex: Male

DRUGS (1)
  1. CAPECITABINE [Suspect]
     Active Substance: CAPECITABINE
     Indication: Neoplasm malignant
     Dosage: 4 TABLES BY MOUTH TWICE DAILY FOR 14 DAYS ON AND 7 DAYS OFF PER 21 DAY CYCLE.
     Route: 048
     Dates: start: 20210115

REACTIONS (1)
  - Death [None]
